FAERS Safety Report 18810409 (Version 1)
Quarter: 2021Q1

REPORT INFORMATION
  Report Type: Spontaneous
  Country: DE (occurrence: DE)
  Receive Date: 20210129
  Receipt Date: 20210129
  Transmission Date: 20210419
  Serious: Yes (Other)
  Sender: FDA-Public Use
  Company Number: DE-ALXN-A202101311

PATIENT
  Age: 5 Year

DRUGS (7)
  1. SOLIRIS [Suspect]
     Active Substance: ECULIZUMAB
     Indication: ATYPICAL HAEMOLYTIC URAEMIC SYNDROME
     Dosage: IN COMBINATION WITH CELLCEPT AND METHYLPREDNISOLON
     Route: 065
     Dates: start: 202011
  2. CELLCEPT [Suspect]
     Active Substance: MYCOPHENOLATE MOFETIL\MYCOPHENOLATE MOFETIL HYDROCHLORIDE
     Indication: ATYPICAL HAEMOLYTIC URAEMIC SYNDROME
     Dosage: 2 TIMES 400 MG, IN COMBINATION WITH METHYLPREDNISOLON AND SOLIRIS
     Route: 042
     Dates: start: 202011
  3. METHYLPREDNISOLONE. [Suspect]
     Active Substance: METHYLPREDNISOLONE
     Indication: RENAL FAILURE
  4. CELLCEPT [Suspect]
     Active Substance: MYCOPHENOLATE MOFETIL\MYCOPHENOLATE MOFETIL HYDROCHLORIDE
     Indication: RENAL FAILURE
  5. SOLIRIS [Suspect]
     Active Substance: ECULIZUMAB
     Indication: OFF LABEL USE
  6. METHYLPREDNISOLONE. [Suspect]
     Active Substance: METHYLPREDNISOLONE
     Indication: ATYPICAL HAEMOLYTIC URAEMIC SYNDROME
     Dosage: IN COMBINATION WITH CELLCEPT AND SOLIRIS
     Route: 065
     Dates: start: 202011
  7. SOLIRIS [Suspect]
     Active Substance: ECULIZUMAB
     Indication: RENAL FAILURE

REACTIONS (2)
  - Off label use [Unknown]
  - Proteinuria [Not Recovered/Not Resolved]
